FAERS Safety Report 9260550 (Version 1)
Quarter: 2013Q2

REPORT INFORMATION
  Report Type: Spontaneous
  Country: AU (occurrence: AU)
  Receive Date: 20130429
  Receipt Date: 20130429
  Transmission Date: 20140414
  Serious: Yes (Other)
  Sender: FDA-Public Use
  Company Number: AU-CELGENEUS-008-20785-13042946

PATIENT
  Sex: Female

DRUGS (1)
  1. THALIDOMIDE [Suspect]
     Indication: PLASMA CELL MYELOMA RECURRENT
     Dosage: 100 MILLIGRAM
     Route: 048
     Dates: start: 20100609

REACTIONS (2)
  - Swollen tongue [Unknown]
  - Hypersensitivity [Unknown]
